FAERS Safety Report 23897781 (Version 1)
Quarter: 2024Q2

REPORT INFORMATION
  Report Type: Spontaneous
  Country: US (occurrence: US)
  Receive Date: 20240524
  Receipt Date: 20240524
  Transmission Date: 20240716
  Serious: No
  Sender: FDA-Public Use
  Company Number: US-Nephron Pharmaceuticals Corporation-2157405

PATIENT
  Sex: Female

DRUGS (1)
  1. ALBUTEROL SULFATE\IPRATROPIUM BROMIDE [Suspect]
     Active Substance: ALBUTEROL SULFATE\IPRATROPIUM BROMIDE

REACTIONS (1)
  - Nausea [Unknown]
